FAERS Safety Report 6231421-2 (Version None)
Quarter: 2009Q2

REPORT INFORMATION
  Report Type: 
  Country: None (occurrence: None)
  Receive Date: 20090616
  Receipt Date: 20090608
  Transmission Date: 20091009
  Serious: Yes (Death)
  Sender: FDA-Public Use
  Company Number: US-GILEAD-2009-0022478

PATIENT
  Sex: Female
  Weight: 113.5 kg

DRUGS (23)
  1. LETAIRIS [Suspect]
     Indication: PULMONARY ARTERIAL HYPERTENSION
     Route: 048
     Dates: start: 20080728
  2. DIGOXIN [Concomitant]
  3. COUMADIN [Concomitant]
  4. LIPITOR [Concomitant]
  5. SPIRONOLACTONE [Concomitant]
  6. ALBUTEROL [Concomitant]
  7. OXYGEN [Concomitant]
  8. MIRAPEX [Concomitant]
  9. GABAPENTIN [Concomitant]
  10. SINEMET [Concomitant]
  11. LIDODERM [Concomitant]
  12. TYLENOL (CAPLET) [Concomitant]
  13. FENTANYL [Concomitant]
  14. PRILOSEC [Concomitant]
  15. FLORINEF [Concomitant]
  16. COLACE [Concomitant]
  17. FOSAMAX [Concomitant]
  18. MULTI-VITAMIN [Concomitant]
  19. POTASSIUM CHLORIDE [Concomitant]
  20. CALCIUM [Concomitant]
  21. VITAMIN D [Concomitant]
  22. MAGNESIUM SULFATE [Concomitant]
  23. LUTEIN [Concomitant]

REACTIONS (1)
  - DEATH [None]
